FAERS Safety Report 12608931 (Version 1)
Quarter: 2016Q3

REPORT INFORMATION
  Report Type: Spontaneous
  Country: US (occurrence: US)
  Receive Date: 20160730
  Receipt Date: 20160730
  Transmission Date: 20161109
  Serious: Yes (Hospitalization)
  Sender: FDA-Public Use
  Company Number: US-ALKERMES INC.-ALK-2016-001945

PATIENT
  Age: 31 Year
  Sex: Female
  Weight: 70.3 kg

DRUGS (8)
  1. GABAPENTIN. [Concomitant]
     Active Substance: GABAPENTIN
     Indication: PAIN
     Dosage: 1 UNK, UNK
     Route: 065
  2. VIVITROL [Suspect]
     Active Substance: NALTREXONE
     Indication: ALCOHOLISM
     Dosage: 380 MG, QMO
     Route: 030
     Dates: start: 2011
  3. LATUDA [Concomitant]
     Active Substance: LURASIDONE HYDROCHLORIDE
     Indication: DEPRESSION
     Dosage: UNK
     Route: 065
  4. ANTABUSE [Concomitant]
     Active Substance: DISULFIRAM
     Indication: ALCOHOLISM
     Dosage: UNK
     Route: 065
  5. TRAZODONE [Concomitant]
     Active Substance: TRAZODONE HYDROCHLORIDE
     Indication: INSOMNIA
     Dosage: 1 UNK, UNK
     Route: 065
  6. LATUDA [Concomitant]
     Active Substance: LURASIDONE HYDROCHLORIDE
     Indication: BIPOLAR DISORDER
  7. CYMBALTA [Concomitant]
     Active Substance: DULOXETINE HYDROCHLORIDE
     Indication: DEPRESSION
     Dosage: 1 UNK, UNK
     Route: 065
  8. CYMBALTA [Concomitant]
     Active Substance: DULOXETINE HYDROCHLORIDE
     Indication: FIBROMYALGIA

REACTIONS (9)
  - Apathy [Not Recovered/Not Resolved]
  - Suicidal ideation [Unknown]
  - Hysterectomy [Recovered/Resolved]
  - Anxiety [Not Recovered/Not Resolved]
  - Depression [Unknown]
  - Crying [Not Recovered/Not Resolved]
  - Mobility decreased [Not Recovered/Not Resolved]
  - Arthralgia [Unknown]
  - Fibromyalgia [Unknown]

NARRATIVE: CASE EVENT DATE: 201601
